FAERS Safety Report 9848650 (Version 1)
Quarter: 2014Q1

REPORT INFORMATION
  Report Type: Spontaneous
  Country: US (occurrence: None)
  Receive Date: 20140127
  Receipt Date: 20140127
  Transmission Date: 20141002
  Serious: Yes (Other)
  Sender: FDA-Public Use
  Company Number: None

PATIENT
  Age: 34 Year
  Sex: Female
  Weight: 52.16 kg

DRUGS (1)
  1. METHYLPHENIDATE [Suspect]
     Indication: ATTENTION DEFICIT/HYPERACTIVITY DISORDER
     Dosage: 2 TABLETS ONCE DAILY TAKEN BY MOUTH
     Route: 048
     Dates: start: 20131107, end: 20131109

REACTIONS (7)
  - Heart rate irregular [None]
  - Dizziness [None]
  - Panic disorder [None]
  - Headache [None]
  - Nausea [None]
  - Feeling abnormal [None]
  - Product substitution issue [None]
